FAERS Safety Report 4332508-1 (Version None)
Quarter: 2004Q2

REPORT INFORMATION
  Report Type: 
  Country: None (occurrence: None)
  Receive Date: 20040401
  Receipt Date: 20040212
  Transmission Date: 20050107
  Serious: Yes (Hospitalization)
  Sender: FDA-Public Use
  Company Number: 2003PK02156

PATIENT
  Age: 32 Year
  Sex: Female

DRUGS (11)
  1. IRESSA [Suspect]
     Indication: COLORECTAL CANCER
     Dosage: 250 MG DAILY PO
     Route: 048
     Dates: start: 20031014
  2. IRINOTECAN [Suspect]
     Indication: COLORECTAL CANCER
     Dosage: 315 MG IV
     Route: 042
     Dates: start: 20031014, end: 20031014
  3. CAPECITABINE [Suspect]
     Indication: COLORECTAL CANCER
     Dosage: 800 MG/M2 DAILY PO
     Route: 048
     Dates: start: 20031014
  4. IMODIUM [Concomitant]
  5. METOCLOPRAMIDE [Concomitant]
  6. DEXAMETHASONE [Concomitant]
  7. THIOGAMMA [Concomitant]
  8. SELENASE [Concomitant]
  9. ATROPINE [Concomitant]
  10. NEXIUM [Concomitant]
  11. KEVATRIL [Concomitant]

REACTIONS (6)
  - COLORECTAL CANCER [None]
  - DRUG INTERACTION [None]
  - MALIGNANT NEOPLASM PROGRESSION [None]
  - METASTATIC NEOPLASM [None]
  - PERITONEAL DISORDER [None]
  - SUBILEUS [None]
